FAERS Safety Report 6191039-7 (Version None)
Quarter: 2009Q2

REPORT INFORMATION
  Report Type: 
  Country: None (occurrence: None)
  Receive Date: 20090513
  Receipt Date: 20090429
  Transmission Date: 20091009
  Serious: Yes (Hospitalization, Disabling)
  Sender: FDA-Public Use
  Company Number: US-1168983

PATIENT
  Age: 55 Year
  Sex: Male
  Weight: 81.6475 kg

DRUGS (1)
  1. OMNIPRED [Suspect]
     Indication: PHOTOREFRACTIVE KERATECTOMY
     Dosage: (1 GTT QID  OPHTHALMIC)
     Route: 047
     Dates: start: 20081222, end: 20090120

REACTIONS (16)
  - AGITATION [None]
  - AMNESIA [None]
  - ANXIETY [None]
  - DELUSION [None]
  - DEPRESSION [None]
  - FEELING ABNORMAL [None]
  - HALLUCINATION, VISUAL [None]
  - INSOMNIA [None]
  - NO THERAPEUTIC RESPONSE [None]
  - PARANOIA [None]
  - PSYCHOTIC DISORDER [None]
  - STRESS [None]
  - SUICIDAL IDEATION [None]
  - SUICIDE ATTEMPT [None]
  - TACHYPHRENIA [None]
  - WEIGHT INCREASED [None]
